FAERS Safety Report 8151199-5 (Version None)
Quarter: 2012Q1

REPORT INFORMATION
  Report Type: 
  Country: None (occurrence: None)
  Receive Date: 20120220
  Receipt Date: 20120209
  Transmission Date: 20120608
  Serious: Yes (Hospitalization)
  Sender: FDA-Public Use
  Company Number: JP-ASTRAZENECA-2012SE09869

PATIENT
  Age: 35 Year
  Sex: Female

DRUGS (9)
  1. SENNARIDE [Concomitant]
     Route: 048
  2. SEROQUEL [Suspect]
     Indication: SCHIZOPHRENIA
     Dosage: 30 MG FINE GRANULE
     Route: 048
     Dates: end: 20111202
  3. ZYPREXA [Suspect]
     Route: 048
  4. FLUNITRAZEPAM [Concomitant]
     Route: 048
  5. LANSOPRAZOLE [Concomitant]
     Route: 048
  6. DAIO-KANZO-TO [Concomitant]
     Route: 048
  7. SEROQUEL [Suspect]
     Dosage: A TOTAL OF 25 MG WAS GIVEN THREE TIMES A WEEK BUT NOT EVERY WEEK
     Route: 048
     Dates: end: 20120127
  8. MAGMITT [Concomitant]
     Route: 048
  9. NERICOLT [Concomitant]

REACTIONS (1)
  - ILEUS [None]
